FAERS Safety Report 25730908 (Version 1)
Quarter: 2025Q3

REPORT INFORMATION
  Report Type: Spontaneous
  Country: US (occurrence: US)
  Receive Date: 20250827
  Receipt Date: 20250827
  Transmission Date: 20251020
  Serious: No
  Sender: MERCK SHARP & DOHME LLC
  Company Number: US-009507513-2316741

PATIENT
  Sex: Female
  Weight: 74.4 kg

DRUGS (28)
  1. SOTATERCEPT [Suspect]
     Active Substance: SOTATERCEPT
     Indication: Product used for unknown indication
  2. SOTATERCEPT [Suspect]
     Active Substance: SOTATERCEPT
  3. SOTATERCEPT [Suspect]
     Active Substance: SOTATERCEPT
  4. SOTATERCEPT [Suspect]
     Active Substance: SOTATERCEPT
  5. TREPROSTINIL SODIUM [Suspect]
     Active Substance: TREPROSTINIL SODIUM
     Indication: Pulmonary arterial hypertension
     Route: 042
     Dates: start: 20240521
  6. ADEMPAS [Concomitant]
     Active Substance: RIOCIGUAT
  7. LEVOTHYROXINE SODIUM [Concomitant]
     Active Substance: LEVOTHYROXINE SODIUM
  8. ATORVASTATIN CALCIUM [Concomitant]
     Active Substance: ATORVASTATIN CALCIUM
  9. TUMS [Concomitant]
     Active Substance: CALCIUM CARBONATE
  10. MINERALS\VITAMINS [Concomitant]
     Active Substance: MINERALS\VITAMINS
  11. Duloxetine HCL (Duloxetine hydrochloride) [Concomitant]
  12. Torsemide (Torasemide) [Concomitant]
  13. POTASSIUM CHLORIDE [Concomitant]
     Active Substance: POTASSIUM CHLORIDE
  14. CRANBERRY [Concomitant]
     Active Substance: CRANBERRY
  15. HYDROXYCHLOROQUINE SULFATE [Concomitant]
     Active Substance: HYDROXYCHLOROQUINE SULFATE
  16. GABAPENTIN [Concomitant]
     Active Substance: GABAPENTIN
  17. PEPCID [Concomitant]
     Active Substance: FAMOTIDINE
  18. BIFIDOBACTERIUM ANIMALIS LACTIS [Concomitant]
     Active Substance: BIFIDOBACTERIUM ANIMALIS LACTIS
  19. OXYGEN [Concomitant]
     Active Substance: OXYGEN
  20. Aspirin EC (Acetylsalicylic acid) [Concomitant]
  21. VITAMIN D3 [Concomitant]
     Active Substance: CHOLECALCIFEROL
  22. Ondansetron odt (Ondansetron hydrochloride) [Concomitant]
  23. ACETAMINOPHEN [Concomitant]
     Active Substance: ACETAMINOPHEN
  24. MAGNESIUM [Concomitant]
     Active Substance: MAGNESIUM
  25. Loperamide (Loperamide hydrochloride) [Concomitant]
  26. Loratadine (Loratadine) [Concomitant]
  27. OZEMPIC [Concomitant]
     Active Substance: SEMAGLUTIDE
  28. FERROUS SULFATE [Concomitant]
     Active Substance: FERROUS SULFATE

REACTIONS (1)
  - Platelet count decreased [Unknown]
